FAERS Safety Report 7931520-0 (Version None)
Quarter: 2011Q4

REPORT INFORMATION
  Report Type: 
  Country: None (occurrence: None)
  Receive Date: 20111121
  Receipt Date: 20111121
  Transmission Date: 20120403
  Serious: No
  Sender: FDA-Public Use
  Company Number: None

PATIENT
  Age: 40 Year
  Sex: Female
  Weight: 54.431 kg

DRUGS (2)
  1. FLAGYL [Concomitant]
     Indication: COLITIS
     Dosage: 1 500MG PILL
     Route: 048
     Dates: start: 20111104, end: 20111118
  2. LEVOFLOXACIN [Suspect]
     Indication: COLITIS
     Dosage: 1 750MG PILL
     Route: 048
     Dates: start: 20111104, end: 20111109

REACTIONS (2)
  - PAIN IN EXTREMITY [None]
  - MYALGIA [None]
